FAERS Safety Report 6529358-4 (Version None)
Quarter: 2010Q1

REPORT INFORMATION
  Report Type: 
  Country: None (occurrence: None)
  Receive Date: 20100107
  Receipt Date: 20091228
  Transmission Date: 20100710
  Serious: Yes (Other)
  Sender: FDA-Public Use
  Company Number: US-JNJFOC-20100101017

PATIENT
  Sex: Female

DRUGS (2)
  1. LEVAQUIN [Suspect]
     Indication: SINUSITIS
     Route: 065
  2. LEVAQUIN [Suspect]
     Indication: BRONCHITIS
     Route: 065

REACTIONS (7)
  - JOINT INJURY [None]
  - MUSCLE RUPTURE [None]
  - PLANTAR FASCIITIS [None]
  - TENDON DISORDER [None]
  - TENDON RUPTURE [None]
  - TENDONITIS [None]
  - TENOSYNOVITIS [None]
